FAERS Safety Report 19821752 (Version 5)
Quarter: 2022Q1

REPORT INFORMATION
  Report Type: Report from Study
  Country: US (occurrence: US)
  Receive Date: 20210913
  Receipt Date: 20220225
  Transmission Date: 20220423
  Serious: No
  Sender: FDA-Public Use
  Company Number: NVSC2021US206204

PATIENT
  Sex: Female

DRUGS (1)
  1. PIQRAY [Suspect]
     Active Substance: ALPELISIB
     Indication: Breast cancer
     Dosage: 300 MG, QD
     Route: 048

REACTIONS (8)
  - Tenderness [Unknown]
  - Energy increased [Not Recovered/Not Resolved]
  - Weight decreased [Recovered/Resolved]
  - Rash [Recovered/Resolved]
  - Dry mouth [Recovering/Resolving]
  - Stomatitis [Recovering/Resolving]
  - Rash [Unknown]
  - Pruritus [Unknown]
